FAERS Safety Report 9080249 (Version 1)
Quarter: 2013Q1

REPORT INFORMATION
  Report Type: Report from Study
  Country: US (occurrence: US)
  Receive Date: 20130130
  Receipt Date: 20130130
  Transmission Date: 20140127
  Serious: No
  Sender: FDA-Public Use
  Company Number: US-ABBOTT-12P-163-0970471-00

PATIENT
  Age: 31 Year
  Sex: Female
  Weight: 86.26 kg

DRUGS (9)
  1. HUMIRA 40 MG/0.8 ML PEN [Suspect]
     Indication: RETINITIS PIGMENTOSA
     Route: 058
     Dates: start: 20120810
  2. HUMIRA 40 MG/0.8 ML PEN [Suspect]
     Indication: UVEITIS
  3. HUMIRA 40 MG/0.8 ML PEN [Suspect]
     Indication: EYE INFLAMMATION
  4. ZOLAMIDE [Concomitant]
     Indication: RETINITIS
  5. PREDNISOLON [Concomitant]
     Indication: UVEITIS
     Route: 047
  6. BRIMONIDINE TARTRATE [Concomitant]
     Indication: UVEITIS
  7. PENTOLATE [Concomitant]
     Indication: UVEITIS
  8. BROMDAY [Concomitant]
     Indication: PRODUCT USED FOR UNKNOWN INDICATION
  9. DORZOLAMIDE [Concomitant]
     Indication: PRODUCT USED FOR UNKNOWN INDICATION

REACTIONS (1)
  - Off label use [Not Recovered/Not Resolved]
